FAERS Safety Report 4695581-7 (Version None)
Quarter: 2005Q2

REPORT INFORMATION
  Report Type: 
  Country: None (occurrence: None)
  Receive Date: 20050524
  Receipt Date: 20050317
  Transmission Date: 20051028
  Serious: Yes (Life-Threatening)
  Sender: FDA-Public Use
  Company Number: 2005AP01743

PATIENT
  Age: 1 Year
  Sex: Male
  Weight: 10 kg

DRUGS (2)
  1. MEROPEN [Suspect]
     Indication: PYREXIA
     Route: 042
     Dates: start: 20041206, end: 20041206
  2. MODACIN [Concomitant]

REACTIONS (1)
  - ANAPHYLACTOID REACTION [None]
